FAERS Safety Report 9986715 (Version 1)
Quarter: 2014Q1

REPORT INFORMATION
  Report Type: Report from Study
  Country: US (occurrence: US)
  Receive Date: 20140307
  Receipt Date: 20140307
  Transmission Date: 20141002
  Serious: Yes (Hospitalization)
  Sender: FDA-Public Use
  Company Number: US-ABBVIE-13P-163-1080923-00

PATIENT
  Sex: Female
  Weight: 54.48 kg

DRUGS (9)
  1. HUMIRA [Suspect]
     Indication: RHEUMATOID ARTHRITIS
     Dates: start: 2009, end: 2012
  2. METHOTREXATE [Concomitant]
     Indication: RHEUMATOID ARTHRITIS
  3. VOLTAREN [Concomitant]
     Indication: HYPERLIPIDAEMIA
  4. TENORMIN [Concomitant]
     Indication: PRODUCT USED FOR UNKNOWN INDICATION
  5. LIMBREL [Concomitant]
     Indication: RHEUMATOID ARTHRITIS
  6. LASIX [Concomitant]
     Indication: FLUID RETENTION
  7. LIPITOR [Concomitant]
     Indication: HYPERLIPIDAEMIA
  8. ARMOUR THYROID [Concomitant]
     Indication: HYPOTHYROIDISM
  9. FOLIC ACID [Concomitant]
     Indication: VITAMIN SUPPLEMENTATION

REACTIONS (2)
  - Invasive lobular breast carcinoma [Recovered/Resolved]
  - Intraductal proliferative breast lesion [Recovered/Resolved]
